FAERS Safety Report 11138080 (Version 2)
Quarter: 2015Q4

REPORT INFORMATION
  Report Type: Report from Study
  Country: US (occurrence: US)
  Receive Date: 20150526
  Receipt Date: 20151221
  Transmission Date: 20160304
  Serious: Yes (Other)
  Sender: FDA-Public Use
  Company Number: PHEH2015US009521

PATIENT
  Age: 56 Year
  Sex: Female

DRUGS (1)
  1. EXTAVIA [Suspect]
     Active Substance: INTERFERON BETA-1B
     Indication: MULTIPLE SCLEROSIS
     Dosage: 0.25 MG, QOD
     Route: 058

REACTIONS (5)
  - Pain [Unknown]
  - Balance disorder [Unknown]
  - Spinal compression fracture [Unknown]
  - Hypoaesthesia [Unknown]
  - Back pain [Unknown]

NARRATIVE: CASE EVENT DATE: 20150904
